FAERS Safety Report 6170993-3 (Version None)
Quarter: 2009Q2

REPORT INFORMATION
  Report Type: 
  Country: None (occurrence: None)
  Receive Date: 20090427
  Receipt Date: 20090427
  Transmission Date: 20091009
  Serious: Yes (Hospitalization)
  Sender: FDA-Public Use
  Company Number: None

PATIENT
  Sex: Female
  Weight: 62.72 kg

DRUGS (2)
  1. CISPLATIN [Suspect]
     Dosage: 51 MG
  2. ERBITUX [Suspect]
     Dosage: 423 MG

REACTIONS (8)
  - ABSCESS [None]
  - ANAEMIA [None]
  - DYSPNOEA [None]
  - LYMPHOCELE [None]
  - OEDEMA PERIPHERAL [None]
  - PYREXIA [None]
  - TACHYCARDIA [None]
  - URINARY TRACT INFECTION [None]
